FAERS Safety Report 24063093 (Version 2)
Quarter: 2024Q3

REPORT INFORMATION
  Report Type: Spontaneous
  Country: JP (occurrence: JP)
  Receive Date: 20240709
  Receipt Date: 20240730
  Transmission Date: 20241016
  Serious: Yes (Hospitalization)
  Sender: JOHNSON AND JOHNSON
  Company Number: JP-JNJFOC-20240720407

PATIENT
  Age: 95 Year
  Sex: Female

DRUGS (1)
  1. SIMPONI [Suspect]
     Active Substance: GOLIMUMAB
     Indication: Rheumatoid arthritis
     Route: 058

REACTIONS (3)
  - Lumbar vertebral fracture [Unknown]
  - Pyrexia [Unknown]
  - Off label use [Unknown]

NARRATIVE: CASE EVENT DATE: 20240705
